FAERS Safety Report 7117190-2 (Version None)
Quarter: 2010Q4

REPORT INFORMATION
  Report Type: 
  Country: None (occurrence: None)
  Receive Date: 20101115
  Receipt Date: 20101108
  Transmission Date: 20110411
  Serious: Yes (Life-Threatening, Hospitalization, Other)
  Sender: FDA-Public Use
  Company Number: 2010AC000570

PATIENT
  Age: 57 Year
  Sex: Female

DRUGS (60)
  1. DIGOXIN [Suspect]
     Indication: CARDIAC DISORDER
     Dosage: 0.25 MG; QD; PO
     Route: 048
     Dates: start: 20010306, end: 20080101
  2. DIGOXIN [Suspect]
     Dosage: 0.25 MG; QOD; PO
     Route: 048
     Dates: start: 20080101, end: 20080612
  3. ULTRAM [Concomitant]
  4. PROPOXYPHENE HYDROCHLORIDE [Concomitant]
  5. OXYCONTIN [Concomitant]
  6. OXYCODONE HCL [Concomitant]
  7. BUTALBITAL [Concomitant]
  8. ACETAMINOPHEN [Concomitant]
  9. NEURONTIN [Concomitant]
  10. DIAZEPAM [Concomitant]
  11. PREMARIN [Concomitant]
  12. MEDROXYPROGESTERONE [Concomitant]
  13. LIPITOR [Concomitant]
  14. PRAVASTATIN [Concomitant]
  15. FUROSEMIDE [Concomitant]
  16. TOPROL-XL [Concomitant]
  17. LISINOPRIL [Concomitant]
  18. CIMETIDINE [Concomitant]
  19. HYDROCODONE [Concomitant]
  20. VICODIN [Concomitant]
  21. ROXICET [Concomitant]
  22. NITROGLYCERIN [Concomitant]
  23. VIOXX [Concomitant]
  24. NITROGLYCERIN [Concomitant]
  25. TRAZODONE [Concomitant]
  26. GUAIFENESIN [Concomitant]
  27. TEQUIN [Concomitant]
  28. TUSSIONEX SUSPENSION [Concomitant]
  29. AUGMENTIN [Concomitant]
  30. HYDROXYZINE [Concomitant]
  31. PREVACID [Concomitant]
  32. HYDROCODONE BITARTRATE + ACETAMINOPHEN [Concomitant]
  33. MEDROL [Concomitant]
  34. ASPIRIN [Concomitant]
  35. MULTI-VITAMIN [Concomitant]
  36. ASCORBIC ACID [Concomitant]
  37. WELLBUTRIN [Concomitant]
  38. FIORICET [Concomitant]
  39. PLAVIX [Concomitant]
  40. CEFZIL [Concomitant]
  41. COMBIVENT [Concomitant]
  42. LORAZEPAM [Concomitant]
  43. PRAVACHOL [Concomitant]
  44. AMANTADINE HCL [Concomitant]
  45. PROCHLORPERAZINE [Concomitant]
  46. TOBRAMYCIN [Concomitant]
  47. OMNICEF [Concomitant]
  48. NEXIUM [Concomitant]
  49. METOPROLOL [Concomitant]
  50. NORVASC [Concomitant]
  51. KEPPRA [Concomitant]
  52. ADVAIR DISKUS 100/50 [Concomitant]
  53. FLU SHOT [Concomitant]
  54. PREDNISONE [Concomitant]
  55. CYCLOBENZAPRINE [Concomitant]
  56. AMIODARONE [Concomitant]
  57. EPINEPHRINE [Concomitant]
  58. ATROPINE [Concomitant]
  59. STEROID BURST [Concomitant]
  60. MAGNESIUM [Concomitant]

REACTIONS (23)
  - ANXIETY [None]
  - ATRIAL FIBRILLATION [None]
  - ATRIOVENTRICULAR BLOCK FIRST DEGREE [None]
  - BACK PAIN [None]
  - BLOOD URIC ACID INCREASED [None]
  - BRADYCARDIA [None]
  - BUNDLE BRANCH BLOCK LEFT [None]
  - CARDIAC ARREST [None]
  - CARDIAC DEATH [None]
  - CARDIOACTIVE DRUG LEVEL INCREASED [None]
  - COUGH [None]
  - DRUG INTERACTION [None]
  - DYSPEPSIA [None]
  - ELECTROCARDIOGRAM QT PROLONGED [None]
  - EMOTIONAL DISTRESS [None]
  - ENCEPHALOPATHY [None]
  - GASTROOESOPHAGEAL REFLUX DISEASE [None]
  - INJURY [None]
  - INTERVERTEBRAL DISC PROTRUSION [None]
  - MITRAL VALVE INCOMPETENCE [None]
  - MYOCARDIAL ISCHAEMIA [None]
  - TORSADE DE POINTES [None]
  - UNRESPONSIVE TO STIMULI [None]
